FAERS Safety Report 7853357-3 (Version None)
Quarter: 2011Q4

REPORT INFORMATION
  Report Type: 
  Country: None (occurrence: None)
  Receive Date: 20111026
  Receipt Date: 20111017
  Transmission Date: 20120403
  Serious: Yes (Other)
  Sender: FDA-Public Use
  Company Number: US-PURDUE-USA-2011-0075098

PATIENT
  Sex: Male
  Weight: 71.655 kg

DRUGS (5)
  1. SIMVASTATIN [Concomitant]
     Indication: PRODUCT USED FOR UNKNOWN INDICATION
     Dosage: UNK
  2. VALIUM [Concomitant]
     Indication: PRODUCT USED FOR UNKNOWN INDICATION
     Dosage: 10 MG, TID
  3. OXYCODONE HCL [Suspect]
     Indication: NECK PAIN
     Dosage: 30 MG, TID
  4. OXYCODONE HCL [Suspect]
     Indication: BACK PAIN
     Dosage: 40 MG, TID
  5. AMITRIPTYLINE HCL [Concomitant]
     Indication: PRODUCT USED FOR UNKNOWN INDICATION
     Dosage: 50 MG, NOCTE

REACTIONS (8)
  - DELIRIUM TREMENS [None]
  - HYPERHIDROSIS [None]
  - MALAISE [None]
  - FAECES DISCOLOURED [None]
  - DEHYDRATION [None]
  - DIARRHOEA [None]
  - INFLUENZA [None]
  - VOMITING [None]
